FAERS Safety Report 24684075 (Version 3)
Quarter: 2025Q1

REPORT INFORMATION
  Report Type: Report from Study
  Country: PK (occurrence: PK)
  Receive Date: 20241202
  Receipt Date: 20250123
  Transmission Date: 20250409
  Serious: Yes (Death)
  Sender: ROCHE
  Company Number: PK-ROCHE-10000144891

PATIENT
  Age: 45 Year
  Sex: Male

DRUGS (2)
  1. AVASTIN [Suspect]
     Active Substance: BEVACIZUMAB
     Indication: Glioblastoma
     Route: 042
     Dates: start: 20240907, end: 20240930
  2. AVASTIN [Suspect]
     Active Substance: BEVACIZUMAB
     Route: 042
     Dates: start: 20240907, end: 20240930

REACTIONS (1)
  - Disease progression [Fatal]

NARRATIVE: CASE EVENT DATE: 20241024
